FAERS Safety Report 7176959-9 (Version None)
Quarter: 2010Q4

REPORT INFORMATION
  Report Type: 
  Country: None (occurrence: None)
  Receive Date: 20101216
  Receipt Date: 20101216
  Transmission Date: 20110411
  Serious: Yes (Death)
  Sender: FDA-Public Use
  Company Number: None

PATIENT
  Age: 69 Year
  Sex: Male
  Weight: 68.0396 kg

DRUGS (1)
  1. DARVOCET [Suspect]
     Indication: PROSTATIC PAIN
     Dosage: NOT SURE 4 TO 6 HRS ORAL
     Route: 048
     Dates: start: 19730201, end: 19730202

REACTIONS (1)
  - ATRIAL FIBRILLATION [None]
